APPROVED DRUG PRODUCT: FOLIC ACID
Active Ingredient: FOLIC ACID
Strength: 1MG
Dosage Form/Route: TABLET;ORAL
Application: A088199 | Product #001
Applicant: UDL LABORATORIES INC
Approved: Mar 29, 1983 | RLD: No | RS: No | Type: DISCN